FAERS Safety Report 8009712-4 (Version None)
Quarter: 2011Q4

REPORT INFORMATION
  Report Type: 
  Country: None (occurrence: None)
  Receive Date: 20111228
  Receipt Date: 20111219
  Transmission Date: 20120403
  Serious: No
  Sender: FDA-Public Use
  Company Number: US-BIOGENIDEC-2011BI047952

PATIENT
  Age: 42 Year
  Sex: Male

DRUGS (3)
  1. TYSABRI [Suspect]
     Indication: MULTIPLE SCLEROSIS
     Route: 042
     Dates: start: 20100514, end: 20111007
  2. TYSABRI [Suspect]
     Route: 042
     Dates: start: 20090122, end: 20090521
  3. TYSABRI [Suspect]
     Route: 042
     Dates: start: 20111201

REACTIONS (1)
  - BRONCHITIS [None]
